FAERS Safety Report 23357237 (Version 1)
Quarter: 2023Q4

REPORT INFORMATION
  Report Type: Spontaneous
  Country: US (occurrence: None)
  Receive Date: 20231229
  Receipt Date: 20231229
  Transmission Date: 20240110
  Serious: Yes (Hospitalization)
  Sender: FDA-Public Use
  Company Number: None

PATIENT
  Sex: Female

DRUGS (1)
  1. ONUREG [Suspect]
     Active Substance: AZACITIDINE
     Indication: Myeloid leukaemia
     Dosage: 200 MG ORAL??TAKE 1 TABLET BY MOUTH DAILY FOR 2 WEEKS ON, THEN 2 WEEKS OFF. PT STARTS NEXT CYCLE ON
     Route: 048
     Dates: start: 202311

REACTIONS (2)
  - Joint swelling [None]
  - Infection [None]
